FAERS Safety Report 24067509 (Version 1)
Quarter: 2024Q3

REPORT INFORMATION
  Report Type: Spontaneous
  Country: US (occurrence: US)
  Receive Date: 20240709
  Receipt Date: 20240709
  Transmission Date: 20241017
  Serious: No
  Sender: BIOGEN
  Company Number: US-BIOGEN-2024BI01271896

PATIENT
  Sex: Female

DRUGS (2)
  1. ZURZUVAE [Suspect]
     Active Substance: ZURANOLONE
     Indication: Product used for unknown indication
     Route: 050
  2. ZURZUVAE [Suspect]
     Active Substance: ZURANOLONE
     Dosage: LOWER DOSE
     Route: 050

REACTIONS (3)
  - Dyskinesia [Unknown]
  - Tremor [Unknown]
  - Somnolence [Unknown]
